FAERS Safety Report 12215887 (Version 3)
Quarter: 2018Q2

REPORT INFORMATION
  Report Type: Spontaneous
  Country: BR (occurrence: BR)
  Receive Date: 20160328
  Receipt Date: 20180517
  Transmission Date: 20180711
  Serious: Yes (Other)
  Sender: FDA-Public Use
  Company Number: BR-AMGEN-BRASP2016037973

PATIENT
  Age: 54 Year
  Sex: Female
  Weight: 80 kg

DRUGS (11)
  1. ATENOLOL. [Concomitant]
     Active Substance: ATENOLOL
     Dosage: 25 MG, UNK
  2. ABLOK [Concomitant]
     Active Substance: ATENOLOL
     Indication: CARDIAC DISORDER
     Dosage: UNK
  3. SIMVASTATIN. [Concomitant]
     Active Substance: SIMVASTATIN
     Dosage: 20 MG, UNK
  4. TYLEX [Concomitant]
     Active Substance: ACETAMINOPHEN\CODEINE PHOSPHATE
     Dosage: 30 MG, UNK
  5. DRAMAMINE [Concomitant]
     Active Substance: DIMENHYDRINATE
     Indication: EATING DISORDER
     Dosage: 25 MG, UNK
  6. ENBREL [Suspect]
     Active Substance: ETANERCEPT
     Indication: ANKYLOSING SPONDYLITIS
     Dosage: 50 MG, 1X/WEEK
     Route: 058
     Dates: start: 20160211, end: 201608
  7. AMLODIPINE [Concomitant]
     Active Substance: AMLODIPINE BESYLATE
     Indication: CARDIAC DISORDER
     Dosage: 5 MG, UNK
  8. MELHORAL [Concomitant]
     Active Substance: ASPIRIN\CAFFEINE
     Indication: HEADACHE
     Dosage: UNK
  9. HYDROCHLOROTHIAZIDE. [Concomitant]
     Active Substance: HYDROCHLOROTHIAZIDE
     Indication: CARDIAC DISORDER
     Dosage: 25 MG, UNK
     Dates: start: 2015
  10. OMEPRAZOLE. [Concomitant]
     Active Substance: OMEPRAZOLE
     Indication: GASTROOESOPHAGEAL REFLUX DISEASE
     Dosage: 40 MG, UNK(STARTED MORE THAN 5 YEARS BEFORE 17MAY2016)
  11. VIMOVO [Concomitant]
     Active Substance: ESOMEPRAZOLE MAGNESIUM\NAPROXEN
     Dosage: 30 MG, UNK

REACTIONS (21)
  - Fall [Not Recovered/Not Resolved]
  - Pain in extremity [Unknown]
  - Abdominal distension [Unknown]
  - Hypersensitivity [Unknown]
  - Joint swelling [Not Recovered/Not Resolved]
  - Pruritus generalised [Recovered/Resolved]
  - Wound [Not Recovered/Not Resolved]
  - Gastritis [Unknown]
  - Gastric polyps [Not Recovered/Not Resolved]
  - Drug ineffective [Unknown]
  - Thyroid mass [Not Recovered/Not Resolved]
  - Palpitations [Recovered/Resolved]
  - Arthralgia [Not Recovered/Not Resolved]
  - Throat tightness [Unknown]
  - Pain [Unknown]
  - Eating disorder [Unknown]
  - Psoriasis [Not Recovered/Not Resolved]
  - Hepatic enzyme increased [Not Recovered/Not Resolved]
  - Blood pressure increased [Recovered/Resolved]
  - Joint injury [Not Recovered/Not Resolved]
  - Skin haemorrhage [Unknown]

NARRATIVE: CASE EVENT DATE: 2016
